FAERS Safety Report 9386710 (Version 5)
Quarter: 2014Q2

REPORT INFORMATION
  Report Type: Spontaneous
  Country: CN (occurrence: CN)
  Receive Date: 20130708
  Receipt Date: 20140512
  Transmission Date: 20141212
  Serious: Yes (Death, Hospitalization)
  Sender: FDA-Public Use
  Company Number: PHHY2013CN069015

PATIENT
  Age: 66 Year
  Sex: Male

DRUGS (5)
  1. COMTAN [Suspect]
     Indication: PARKINSON^S DISEASE
     Dosage: 100 MG, TID
     Route: 048
     Dates: start: 20130601, end: 20130620
  2. MEDOPA//METHYLDOPA [Concomitant]
     Dosage: 250 MG, TID
  3. BAYASPIRIN [Concomitant]
     Dosage: 100 MG, TID
     Dates: start: 201304
  4. BAYASPIRIN [Concomitant]
     Dosage: 1 DF, QD
     Route: 048
     Dates: start: 20120601, end: 20130620
  5. MADOPAR [Concomitant]
     Dosage: 250 MG, TID
     Dates: start: 20130601, end: 20130620

REACTIONS (13)
  - Acute leukaemia [Fatal]
  - Mouth haemorrhage [Unknown]
  - Gingival bleeding [Unknown]
  - Pyrexia [Unknown]
  - Fatigue [Unknown]
  - Anaemia [Unknown]
  - Thrombocytopenia [Unknown]
  - Leukocytosis [Unknown]
  - Epistaxis [Unknown]
  - Mouth ulceration [Unknown]
  - Melaena [Unknown]
  - Haematochezia [Unknown]
  - Depressed level of consciousness [Unknown]
